FAERS Safety Report 7643244-8 (Version None)
Quarter: 2011Q3

REPORT INFORMATION
  Report Type: 
  Country: None (occurrence: None)
  Receive Date: 20110729
  Receipt Date: 20110722
  Transmission Date: 20111222
  Serious: No
  Sender: FDA-Public Use
  Company Number: US-BIOGENIDEC-2011BI026782

PATIENT
  Age: 61 Year
  Sex: Male

DRUGS (3)
  1. INTERFERON INJECTION (NOS) [Concomitant]
     Indication: PRODUCT USED FOR UNKNOWN INDICATION
  2. COPAXONE [Concomitant]
     Indication: PRODUCT USED FOR UNKNOWN INDICATION
     Dates: start: 20110601
  3. TYSABRI [Suspect]
     Indication: MULTIPLE SCLEROSIS
     Route: 042
     Dates: start: 20080902

REACTIONS (5)
  - RASH [None]
  - RASH PAPULAR [None]
  - CHILLS [None]
  - PYREXIA [None]
  - GAIT DISTURBANCE [None]
